FAERS Safety Report 23179964 (Version 1)
Quarter: 2023Q4

REPORT INFORMATION
  Report Type: Spontaneous
  Country: CN (occurrence: CN)
  Receive Date: 20231114
  Receipt Date: 20231114
  Transmission Date: 20240110
  Serious: Yes (Hospitalization)
  Sender: FDA-Public Use
  Company Number: CN-ASTELLAS-2023US033895

PATIENT
  Sex: Female

DRUGS (9)
  1. TACROLIMUS [Interacting]
     Active Substance: TACROLIMUS
     Indication: Renal transplant
     Dosage: (8 MG/D TWICE DAILY), EVERY 12 HOURS
     Route: 065
  2. TACROLIMUS [Interacting]
     Active Substance: TACROLIMUS
     Dosage: UNK UNK, UNKNOWN FREQ.
     Route: 065
  3. PAXLOVID [Interacting]
     Active Substance: NIRMATRELVIR\RITONAVIR
     Indication: COVID-19
     Dosage: NIRMATRELVIR (600 MG/D)/RITONAVIR (200 MG/D), EVERY 12 HOURS
     Route: 048
     Dates: start: 202212
  4. PHENYTOIN SODIUM [Interacting]
     Active Substance: PHENYTOIN SODIUM
     Indication: Toxicity to various agents
     Dosage: [600 MG/D, THRICE DAILY ON DAYS 1 TO 2], EVERY 8 HOURS
     Route: 048
     Dates: start: 202212, end: 202212
  5. PHENYTOIN SODIUM [Interacting]
     Active Substance: PHENYTOIN SODIUM
     Dosage: [300 MG/D, TWICE DAILY ON DAY 3], EVERY 12 HOURS
     Route: 048
     Dates: start: 202212, end: 202212
  6. PHENYTOIN SODIUM [Interacting]
     Active Substance: PHENYTOIN SODIUM
     Dosage: 100 MG/D, ONCE EVERY TWO DAYS FROM DAY 5, OTHER
     Route: 048
     Dates: start: 202212
  7. MYCOPHENOLATE SODIUM [Concomitant]
     Active Substance: MYCOPHENOLATE SODIUM
     Indication: Renal transplant
     Dosage: 1.44 G/D, EVERY 12 HOURS
     Route: 065
     Dates: end: 202212
  8. MYCOPHENOLATE SODIUM [Concomitant]
     Active Substance: MYCOPHENOLATE SODIUM
     Dosage: UNK UNK, UNKNOWN FREQ.
     Route: 065
  9. METHYLPREDNISOLONE [Concomitant]
     Active Substance: METHYLPREDNISOLONE
     Indication: Renal transplant
     Route: 065

REACTIONS (5)
  - Toxicity to various agents [Recovering/Resolving]
  - Diarrhoea [Recovered/Resolved]
  - Nausea [Unknown]
  - Drug interaction [Unknown]
  - Drug interaction [Unknown]

NARRATIVE: CASE EVENT DATE: 20221201
